FAERS Safety Report 25982118 (Version 2)
Quarter: 2025Q4

REPORT INFORMATION
  Report Type: Spontaneous
  Country: US (occurrence: US)
  Receive Date: 20251031
  Receipt Date: 20251118
  Transmission Date: 20260118
  Serious: Yes (Hospitalization, Other)
  Sender: Vantive US Healthcare
  Company Number: US-VANTIVE-2025VAN004653

PATIENT
  Age: 70 Year
  Sex: Male

DRUGS (7)
  1. EXTRANEAL [Suspect]
     Active Substance: CALCIUM CHLORIDE\ICODEXTRIN\MAGNESIUM CHLORIDE\SODIUM CHLORIDE\SODIUM LACTATE
     Dosage: UNK
     Route: 033
  2. CALCIUM [Suspect]
     Active Substance: CALCIUM
     Dosage: 2.5 MEQ/L
     Route: 065
  3. MAGNESIUM [Suspect]
     Active Substance: MAGNESIUM
     Dosage: 0.5 MEQ/L
     Route: 065
  4. DEXTROSE [Suspect]
     Active Substance: DEXTROSE MONOHYDRATE
     Dosage: UNK
     Route: 065
  5. DEXTROSE [Suspect]
     Active Substance: DEXTROSE MONOHYDRATE
     Route: 065
  6. DEXTROSE [Suspect]
     Active Substance: DEXTROSE MONOHYDRATE
     Route: 065
  7. CEFTAZIDIME [Suspect]
     Active Substance: CEFTAZIDIME
     Indication: Peritonitis bacterial
     Dosage: 1500 MG DAILY
     Route: 065
     Dates: start: 202509, end: 202509

REACTIONS (13)
  - COVID-19 pneumonia [Recovered/Resolved]
  - Dyspnoea [Recovered/Resolved]
  - Peritonitis bacterial [Unknown]
  - Abdominal pain [Unknown]
  - Peritoneal cloudy effluent [Unknown]
  - Malnutrition [Recovering/Resolving]
  - Peritoneal dialysis complication [Unknown]
  - Procedural complication [Unknown]
  - Discomfort [Unknown]
  - Hyponatraemia [Recovering/Resolving]
  - Rash [Recovered/Resolved]
  - Procedural pain [Unknown]
  - Hypersensitivity [Recovered/Resolved]

NARRATIVE: CASE EVENT DATE: 20250918
